FAERS Safety Report 20966766 (Version 1)
Quarter: 2022Q2

REPORT INFORMATION
  Report Type: Spontaneous
  Country: TR (occurrence: None)
  Receive Date: 20220616
  Receipt Date: 20220616
  Transmission Date: 20220721
  Serious: Yes (Hospitalization, Other)
  Sender: FDA-Public Use
  Company Number: TR-MICRO LABS LIMITED-ML2022-02717

PATIENT
  Age: 19 Year
  Sex: Female

DRUGS (3)
  1. AMOXICILLIN\CLAVULANIC ACID [Suspect]
     Active Substance: AMOXICILLIN\CLAVULANIC ACID
     Indication: Suicidal ideation
     Dosage: 875/125MG
  2. ACETAMINOPHEN\CAFFEINE [Suspect]
     Active Substance: ACETAMINOPHEN\CAFFEINE
     Indication: Suicidal ideation
     Dosage: 500/30MG
  3. FOLIC ACID\IRON\MINERALS\VITAMINS [Suspect]
     Active Substance: FOLIC ACID\IRON\MINERALS\VITAMINS
     Indication: Suicidal ideation

REACTIONS (5)
  - Toxicity to various agents [Unknown]
  - Pre-eclampsia [Unknown]
  - Premature baby [Unknown]
  - Suicide attempt [Unknown]
  - Exposure during pregnancy [Unknown]
